FAERS Safety Report 9887385 (Version 6)
Quarter: 2014Q2

REPORT INFORMATION
  Report Type: Spontaneous
  Country: US (occurrence: US)
  Receive Date: 20140211
  Receipt Date: 20140429
  Transmission Date: 20141212
  Serious: Yes (Other)
  Sender: FDA-Public Use
  Company Number: US-BEH-2012034308

PATIENT
  Age: 52 Year
  Sex: Female
  Weight: 69 kg

DRUGS (38)
  1. HIZENTRA [Suspect]
     Indication: IMMUNODEFICIENCY
     Dosage: 3-4 SITES OVER 1-2 HOURS
     Route: 058
     Dates: start: 20121219, end: 20121219
  2. HIZENTRA [Suspect]
     Route: 058
  3. HIZENTRA [Suspect]
     Route: 058
     Dates: start: 20140417, end: 20140417
  4. ZOCOR [Concomitant]
  5. AMBIEN [Concomitant]
  6. DAYPRO [Concomitant]
  7. SYNTHROID [Concomitant]
  8. ALLEGRA [Concomitant]
  9. ALLEGRA D [Concomitant]
  10. METFORMIN [Concomitant]
  11. SYMBICORT [Concomitant]
     Dosage: 160-4.5 MCG
     Route: 055
  12. NEXIUM [Concomitant]
  13. HYDROCHLOROTHIAZIDE [Concomitant]
  14. TYLENOL [Concomitant]
  15. LMX [Concomitant]
     Indication: PREMEDICATION
  16. MICARDIS [Concomitant]
  17. NORCO [Concomitant]
  18. CARDIZEM CD [Concomitant]
  19. DIPHENHYDRAMINE [Concomitant]
  20. LIDOCAINE [Concomitant]
     Indication: PREMEDICATION
  21. EPI-PEN [Concomitant]
     Indication: PREMEDICATION
  22. ACETAMINOPHEN [Concomitant]
  23. HUMIRA [Concomitant]
  24. CALTRATE 600 WITH VITAMIN D [Concomitant]
  25. PROTONIX [Concomitant]
  26. XANAX [Concomitant]
  27. RESTASIS [Concomitant]
  28. IPRATROPIUM [Concomitant]
  29. PATANASE [Concomitant]
     Route: 045
  30. PROVENTIL HFA [Concomitant]
     Route: 055
  31. MELOXICAM [Concomitant]
  32. KLOR-CON [Concomitant]
  33. MIRALAX [Concomitant]
  34. LUNESTA [Concomitant]
  35. XOPENEX [Concomitant]
     Dosage: 1.25 MG/3 ML SOLUTION
  36. EMLA CREAM [Concomitant]
  37. FERROGELS FORTE [Concomitant]
  38. HUMIRA [Concomitant]

REACTIONS (6)
  - Supraventricular tachycardia [Recovered/Resolved]
  - Infusion site swelling [Unknown]
  - Pruritus [Unknown]
  - Infusion site swelling [Unknown]
  - Pain in extremity [Unknown]
  - Swollen tongue [Unknown]
